FAERS Safety Report 21627566 (Version 3)
Quarter: 2023Q1

REPORT INFORMATION
  Report Type: Spontaneous
  Country: US (occurrence: US)
  Receive Date: 20221122
  Receipt Date: 20230130
  Transmission Date: 20230417
  Serious: Yes (Other)
  Sender: FDA-Public Use
  Company Number: US-BAYER-2022A159081

PATIENT
  Age: 32 Year
  Sex: Male

DRUGS (3)
  1. KOVALTRY [Suspect]
     Active Substance: ANTIHEMOPHILIC FACTOR, HUMAN RECOMBINANT
     Indication: Factor VIII deficiency
     Dosage: 1540 U, TIW, SLOW IV PUSH, AS PROPHYLAXIS
     Route: 042
     Dates: start: 20221230
  2. KOVALTRY [Suspect]
     Active Substance: ANTIHEMOPHILIC FACTOR, HUMAN RECOMBINANT
     Indication: Factor VIII deficiency
     Dosage: 1540 U, Q8HR FOR RIGHT SHOULDER BLEED
     Route: 042
     Dates: start: 2022, end: 2022
  3. KOVALTRY [Suspect]
     Active Substance: ANTIHEMOPHILIC FACTOR, HUMAN RECOMBINANT
     Indication: Factor VIII deficiency
     Dosage: 1 DF, TO TREAT RIGHT SHOULDER BLEED

REACTIONS (2)
  - Haemarthrosis [None]
  - Haemarthrosis [Unknown]

NARRATIVE: CASE EVENT DATE: 20220101
